FAERS Safety Report 8203824-8 (Version None)
Quarter: 2012Q1

REPORT INFORMATION
  Report Type: 
  Country: None (occurrence: None)
  Receive Date: 20120313
  Receipt Date: 20120307
  Transmission Date: 20120608
  Serious: Yes (Other)
  Sender: FDA-Public Use
  Company Number: US-SANOFI-AVENTIS-2012SA015965

PATIENT
  Age: 77 Year
  Sex: Female

DRUGS (2)
  1. SOLOSTAR [Suspect]
     Dates: start: 20110101
  2. LANTUS [Suspect]
     Dosage: 26 UNITS IN THE AM AND 16 UNITS IN THE PM
     Route: 058
     Dates: start: 20110101

REACTIONS (2)
  - SKIN ULCER [None]
  - TENDON RUPTURE [None]
